FAERS Safety Report 8105559-9 (Version None)
Quarter: 2012Q1

REPORT INFORMATION
  Report Type: 
  Country: None (occurrence: None)
  Receive Date: 20120201
  Receipt Date: 20120124
  Transmission Date: 20120608
  Serious: Yes (Other)
  Sender: FDA-Public Use
  Company Number: JP-ROCHE-1026136

PATIENT
  Sex: Male
  Weight: 62 kg

DRUGS (3)
  1. AVASTIN [Suspect]
     Indication: LUNG ADENOCARCINOMA
     Route: 041
     Dates: start: 20111031, end: 20111031
  2. CARBOPLATIN [Concomitant]
     Indication: LUNG ADENOCARCINOMA
     Route: 041
     Dates: start: 20111031, end: 20111031
  3. ALIMTA [Concomitant]
     Indication: LUNG ADENOCARCINOMA
     Route: 041
     Dates: start: 20111031, end: 20111031

REACTIONS (5)
  - DIZZINESS [None]
  - HYPOTENSION [None]
  - SUBDURAL HAEMATOMA [None]
  - FALL [None]
  - CONTUSION [None]
